FAERS Safety Report 9772021 (Version 2)
Quarter: 2013Q4

REPORT INFORMATION
  Report Type: Spontaneous
  Country: JP (occurrence: JP)
  Receive Date: 20131219
  Receipt Date: 20131219
  Transmission Date: 20140711
  Serious: Yes (Life-Threatening, Hospitalization, Disabling)
  Sender: FDA-Public Use
  Company Number: JP-BAYER-2013-145192

PATIENT
  Age: 63 Year
  Sex: Male
  Weight: 62 kg

DRUGS (1)
  1. STIVARGA [Suspect]
     Indication: GASTROINTESTINAL STROMAL TUMOUR
     Dosage: 160 MG, QD
     Route: 048
     Dates: start: 20131008, end: 20131029

REACTIONS (6)
  - Encephalitis [Recovered/Resolved with Sequelae]
  - Paraneoplastic neurological syndrome [Recovered/Resolved with Sequelae]
  - Hyperthermia [Recovered/Resolved]
  - Disseminated intravascular coagulation [Recovered/Resolved]
  - Neutrophil count decreased [Recovered/Resolved]
  - Palmar-plantar erythrodysaesthesia syndrome [Unknown]
